FAERS Safety Report 5796176-4 (Version None)
Quarter: 2008Q2

REPORT INFORMATION
  Report Type: 
  Country: None (occurrence: None)
  Receive Date: 20080601
  Receipt Date: 20080201
  Transmission Date: 20081010
  Serious: No
  Sender: FDA-Public Use
  Company Number: US200802000578

PATIENT
  Age: 36 Year
  Sex: Male

DRUGS (4)
  1. BYETTA [Suspect]
     Indication: TYPE 2 DIABETES MELLITUS
     Dosage: 10 UG, DAILY (1/D), SUBCUTANEOUS
     Route: 058
     Dates: start: 20060101, end: 20080125
  2. EXENATIDE 10MCG PEN,DISPOSABLE DEVICE (EXENATIDE PEN (10 MCG)) PEN,DIS [Concomitant]
  3. METFORMIN HCL [Concomitant]
  4. AMBIEN [Concomitant]

REACTIONS (1)
  - DRUG SCREEN FALSE POSITIVE [None]
